FAERS Safety Report 8095889-1 (Version None)
Quarter: 2012Q1

REPORT INFORMATION
  Report Type: 
  Country: None (occurrence: None)
  Receive Date: 20120129
  Receipt Date: 20111222
  Transmission Date: 20120608
  Serious: No
  Sender: FDA-Public Use
  Company Number: US-ABBOTT-11P-163-0886616-00

PATIENT
  Age: 58 Year
  Sex: Female

DRUGS (5)
  1. TOPROL-XL [Concomitant]
     Indication: MIGRAINE PROPHYLAXIS
     Dosage: FOR 10 YEARS EVERY DAY
  2. VESICARE [Concomitant]
     Indication: INCONTINENCE
  3. HUMIRA [Suspect]
     Indication: RHEUMATOID ARTHRITIS
     Dates: end: 20100301
  4. VESICARE [Concomitant]
     Indication: BLADDER DISORDER
     Dates: start: 20090101
  5. PREMARIN [Concomitant]
     Indication: PRODUCT USED FOR UNKNOWN INDICATION
     Dosage: 0.625 AFTER HYSTERECTOMY IN 1995 DAILY

REACTIONS (2)
  - FATIGUE [None]
  - JOINT SWELLING [None]
